FAERS Safety Report 9379348 (Version 1)
Quarter: 2013Q2

REPORT INFORMATION
  Report Type: Spontaneous
  Country: US (occurrence: None)
  Receive Date: 20130626
  Receipt Date: 20130626
  Transmission Date: 20140414
  Serious: Yes (Death)
  Sender: FDA-Public Use
  Company Number: CHER20130002

PATIENT
  Age: 6 Year
  Sex: Female
  Weight: 44.9 kg

DRUGS (1)
  1. CHERATUSSIN AC [Suspect]
     Indication: RESPIRATORY TRACT INFECTION
     Dosage: 4 DOSES, EVERY 4 HRS AS NEEDED;??
     Route: 048

REACTIONS (8)
  - Brain oedema [None]
  - Drug dispensing error [None]
  - Incorrect dose administered [None]
  - Toxicity to various agents [None]
  - Drug dispensing error [None]
  - Skin discolouration [None]
  - Accidental death [None]
  - Drug level above therapeutic [None]
